FAERS Safety Report 8120911-3 (Version None)
Quarter: 2012Q1

REPORT INFORMATION
  Report Type: 
  Country: None (occurrence: None)
  Receive Date: 20120208
  Receipt Date: 20120130
  Transmission Date: 20120608
  Serious: Yes (Other)
  Sender: FDA-Public Use
  Company Number: IT-ELI_LILLY_AND_COMPANY-IT201201009096

PATIENT
  Sex: Male

DRUGS (3)
  1. SERENASE                           /00027401/ [Concomitant]
     Dosage: 16 GTT, UNK
     Route: 048
  2. STRATTERA [Suspect]
     Indication: ATTENTION DEFICIT/HYPERACTIVITY DISORDER
     Dosage: 50 MG, QD
     Route: 048
     Dates: start: 20110504, end: 20110518
  3. LITHIUM CARBONATE [Concomitant]
     Dosage: 600 MG, UNK
     Route: 048

REACTIONS (2)
  - IRRITABILITY [None]
  - OPPOSITIONAL DEFIANT DISORDER [None]
